FAERS Safety Report 4852893-1 (Version None)
Quarter: 2005Q4

REPORT INFORMATION
  Report Type: 
  Country: None (occurrence: None)
  Receive Date: 20051212
  Receipt Date: 20051129
  Transmission Date: 20060501
  Serious: Yes (Hospitalization)
  Sender: FDA-Public Use
  Company Number: 2005163597

PATIENT
  Age: 60 Year
  Sex: Male

DRUGS (4)
  1. PREDNISOLONE [Suspect]
     Indication: RENAL TRANSPLANT
     Dosage: 1 D
  2. AZATHIOPRINE [Suspect]
     Indication: RENAL TRANSPLANT
  3. CYCLOSPORINE [Suspect]
     Indication: RENAL TRANSPLANT
     Dosage: 400 MG (200 MG, 2 IN 1 D)
  4. TACROLIUMS (TACROLIUMS) [Suspect]
     Indication: RENAL TRANSPLANT
     Dosage: 15 MG (7.5 MG, 2 IN 1D)

REACTIONS (14)
  - CYTOMEGALOVIRUS INFECTION [None]
  - DIABETES MELLITUS INSULIN-DEPENDENT [None]
  - GINGIVAL HYPERTROPHY [None]
  - GRAFT COMPLICATION [None]
  - HEPATITIS [None]
  - HERPES SIMPLEX [None]
  - HERPES ZOSTER [None]
  - LYMPHOPENIA [None]
  - PYREXIA [None]
  - RASH PRURITIC [None]
  - RASH VESICULAR [None]
  - SKIN HYPERPIGMENTATION [None]
  - THROMBOCYTOPENIA [None]
  - VIRUS CULTURE POSITIVE [None]
